FAERS Safety Report 21033829 (Version 3)
Quarter: 2022Q3

REPORT INFORMATION
  Report Type: Spontaneous
  Country: JP (occurrence: JP)
  Receive Date: 20220701
  Receipt Date: 20220805
  Transmission Date: 20221027
  Serious: Yes (Other)
  Sender: FDA-Public Use
  Company Number: JP-GSKNCCC-Case-01523341_AE-59621

PATIENT

DRUGS (1)
  1. ZOVIRAX [Suspect]
     Active Substance: ACYCLOVIR
     Indication: Oral herpes
     Dosage: 200 MG, QID
     Dates: start: 20220622

REACTIONS (1)
  - Foreign body in throat [Unknown]

NARRATIVE: CASE EVENT DATE: 20220623
